FAERS Safety Report 18090968 (Version 1)
Quarter: 2020Q3

REPORT INFORMATION
  Report Type: Spontaneous
  Country: US (occurrence: US)
  Receive Date: 20200729
  Receipt Date: 20200729
  Transmission Date: 20201103
  Serious: No
  Sender: FDA-Public Use
  Company Number: None

PATIENT
  Age: 33 Year
  Sex: Female

DRUGS (1)
  1. HANDY SOLUTIONS HAND SANITIZER WITH ALOE VERA [Suspect]
     Active Substance: ALCOHOL
     Indication: INFECTION PROPHYLAXIS
     Route: 061
     Dates: start: 20200729, end: 20200729

REACTIONS (1)
  - Pain of skin [None]

NARRATIVE: CASE EVENT DATE: 20200729
